FAERS Safety Report 8801106 (Version 2)
Quarter: 2013Q1

REPORT INFORMATION
  Report Type: Spontaneous
  Country: AU (occurrence: AU)
  Receive Date: 20120921
  Receipt Date: 20130319
  Transmission Date: 20140127
  Serious: Yes (Hospitalization)
  Sender: FDA-Public Use
  Company Number: AU-JNJFOC-20120906373

PATIENT
  Age: 54 Year
  Sex: Male

DRUGS (1)
  1. STELARA [Suspect]
     Indication: PRODUCT USED FOR UNKNOWN INDICATION
     Dosage: 1ST INJECTION 3 WEEKS PRIOR TO THE REPORT
     Route: 058
     Dates: start: 20120718

REACTIONS (1)
  - Posterior reversible encephalopathy syndrome [Recovering/Resolving]
